FAERS Safety Report 4633337-1 (Version None)
Quarter: 2005Q2

REPORT INFORMATION
  Report Type: 
  Country: None (occurrence: None)
  Receive Date: 20050412
  Receipt Date: 20050330
  Transmission Date: 20051028
  Serious: Yes (Other)
  Sender: FDA-Public Use
  Company Number: ITWYE557705APR05

PATIENT
  Age: 54 Year
  Sex: Male

DRUGS (1)
  1. GEMTUZUMAB OZOGAMICIN (GEMTUZUMAB OZOGAMICIN, INJECTION, 0) [Suspect]
     Indication: ACUTE PROMYELOCYTIC LEUKAEMIA
     Dosage: 6 MG/M^2 1X PER 1 DAY INTRAVENOUS
     Route: 042
     Dates: start: 20040614, end: 20040614

REACTIONS (1)
  - PSORIASIS [None]
